FAERS Safety Report 22253832 (Version 2)
Quarter: 2023Q2

REPORT INFORMATION
  Report Type: Spontaneous
  Country: JP (occurrence: JP)
  Receive Date: 20230426
  Receipt Date: 20230621
  Transmission Date: 20230721
  Serious: Yes (Other)
  Sender: FDA-Public Use
  Company Number: None

PATIENT

DRUGS (3)
  1. FLUTICASONE FUROATE\VILANTEROL TRIFENATATE [Suspect]
     Active Substance: FLUTICASONE FUROATE\VILANTEROL TRIFENATATE
     Indication: Asthma
     Dosage: 200 ?G, 1D, 1 INHALATION PER DOSE
     Route: 055
     Dates: start: 2020
  2. ONON CAPSULES [Concomitant]
     Indication: Asthma
     Dosage: 2 DF, BID
     Route: 048
     Dates: start: 2020
  3. ALLEGRA TABLETS [Concomitant]
     Indication: Asthma
     Dosage: 1 DF, BID
     Route: 048
     Dates: start: 2020

REACTIONS (1)
  - Glaucoma [Not Recovered/Not Resolved]

NARRATIVE: CASE EVENT DATE: 20230401
